FAERS Safety Report 17099205 (Version 1)
Quarter: 2019Q4

REPORT INFORMATION
  Report Type: Report from Study
  Country: US (occurrence: US)
  Receive Date: 20191202
  Receipt Date: 20191202
  Transmission Date: 20200122
  Serious: Yes (Other)
  Sender: FDA-Public Use
  Company Number: NVSC2019US022575

PATIENT
  Sex: Female

DRUGS (1)
  1. COSENTYX [Suspect]
     Active Substance: SECUKINUMAB
     Indication: PSORIASIS
     Dosage: 300 MG, QW
     Route: 058

REACTIONS (8)
  - Tongue ulceration [Unknown]
  - Psoriasis [Unknown]
  - Diarrhoea [Unknown]
  - Carotid artery disease [Unknown]
  - Abdominal pain upper [Unknown]
  - Skin haemorrhage [Unknown]
  - Injection site bruising [Unknown]
  - Pustule [Not Recovered/Not Resolved]
